FAERS Safety Report 5726148-7 (Version None)
Quarter: 2008Q2

REPORT INFORMATION
  Report Type: 
  Country: None (occurrence: None)
  Receive Date: 20080502
  Receipt Date: 20080502
  Transmission Date: 20081010
  Serious: Yes (Hospitalization)
  Sender: FDA-Public Use
  Company Number: None

PATIENT
  Age: 33 Year
  Sex: Female

DRUGS (2)
  1. VANCOMYCIN [Suspect]
     Indication: ANAPHYLACTIC REACTION
     Dosage: 1 GRAM LESS THAN 1 HOUR IV DRIP
     Route: 041
  2. HEPARIN [Suspect]

REACTIONS (8)
  - ANAPHYLACTOID REACTION [None]
  - HYPOTENSION [None]
  - MUSCLE SPASMS [None]
  - PAIN [None]
  - POST PROCEDURAL COMPLICATION [None]
  - RASH ERYTHEMATOUS [None]
  - RESTLESSNESS [None]
  - TACHYCARDIA [None]
